FAERS Safety Report 24862696 (Version 1)
Quarter: 2025Q1

REPORT INFORMATION
  Report Type: Spontaneous
  Country: SE (occurrence: SE)
  Receive Date: 20250120
  Receipt Date: 20250120
  Transmission Date: 20250409
  Serious: Yes (Other)
  Sender: SANDOZ
  Company Number: SE-002147023-PHHY2014SE005735

PATIENT
  Sex: Male
  Weight: 1.52 kg

DRUGS (6)
  1. CYCLOSPORINE [Suspect]
     Active Substance: CYCLOSPORINE
     Indication: Foetal exposure during pregnancy
     Route: 064
  2. FUROSEMIDE [Suspect]
     Active Substance: FUROSEMIDE
     Indication: Foetal exposure during pregnancy
     Route: 064
  3. HYDRALAZINE [Suspect]
     Active Substance: HYDRALAZINE HYDROCHLORIDE
     Indication: Foetal exposure during pregnancy
     Route: 064
  4. METOPROLOL [Suspect]
     Active Substance: METOPROLOL
     Indication: Foetal exposure during pregnancy
     Route: 064
  5. METHYLPREDNISOLONE [Suspect]
     Active Substance: METHYLPREDNISOLONE
     Indication: Foetal exposure during pregnancy
     Route: 064
  6. PREDNISOLONE [Suspect]
     Active Substance: PREDNISOLONE
     Indication: Foetal exposure during pregnancy
     Route: 064

REACTIONS (7)
  - Low birth weight baby [Unknown]
  - Small for dates baby [Unknown]
  - Growth retardation [Unknown]
  - Premature baby [Unknown]
  - Thrombocytopenia [Recovered/Resolved]
  - Blood creatinine increased [Unknown]
  - Foetal exposure during pregnancy [Unknown]
